FAERS Safety Report 15919815 (Version 1)
Quarter: 2019Q1

REPORT INFORMATION
  Report Type: Spontaneous
  Country: US (occurrence: US)
  Receive Date: 20190205
  Receipt Date: 20190205
  Transmission Date: 20190417
  Serious: No
  Sender: FDA-Public Use
  Company Number: US-ROCHE-2128158

PATIENT
  Sex: Female

DRUGS (2)
  1. XOLAIR [Suspect]
     Active Substance: OMALIZUMAB
     Indication: OESTROGEN RECEPTOR ASSAY NEGATIVE
  2. XOLAIR [Suspect]
     Active Substance: OMALIZUMAB
     Indication: NEOPLASM MALIGNANT
     Dosage: TAKE A 3 TAB BY MOUTH TWICW A DAY FOR 7 DAYS
     Route: 048
     Dates: start: 20171016, end: 20180501

REACTIONS (3)
  - Off label use [Unknown]
  - No adverse event [Unknown]
  - Intentional product use issue [Unknown]
